FAERS Safety Report 25906403 (Version 2)
Quarter: 2025Q4

REPORT INFORMATION
  Report Type: Spontaneous
  Country: US (occurrence: US)
  Receive Date: 20251010
  Receipt Date: 20251017
  Transmission Date: 20260118
  Serious: No
  Sender: INSUD PHARMA
  Company Number: US-INSUD PHARMA-2509US08184

PATIENT

DRUGS (1)
  1. SLYND [Suspect]
     Active Substance: DROSPIRENONE
     Indication: Contraception
     Dosage: 1 DOSAGE FORM, QD
     Route: 048
     Dates: start: 202505

REACTIONS (4)
  - Menstruation irregular [Not Recovered/Not Resolved]
  - Amenorrhoea [Not Recovered/Not Resolved]
  - Heavy menstrual bleeding [Recovered/Resolved]
  - Intermenstrual bleeding [Unknown]

NARRATIVE: CASE EVENT DATE: 20250101
